FAERS Safety Report 9963376 (Version 1)
Quarter: 2014Q1

REPORT INFORMATION
  Report Type: Report from Study
  Country: US (occurrence: US)
  Receive Date: 20140305
  Receipt Date: 20140305
  Transmission Date: 20141002
  Serious: No
  Sender: FDA-Public Use
  Company Number: US-ABBVIE-13P-163-1119599-00

PATIENT
  Age: 76 Year
  Sex: Female

DRUGS (4)
  1. HUMIRA [Suspect]
     Indication: PSORIASIS
     Dates: start: 201303
  2. NEXIUM [Concomitant]
     Indication: GASTROOESOPHAGEAL REFLUX DISEASE
  3. LISINOPRIL [Concomitant]
     Indication: HYPERTENSION
  4. HYDROCHLOROTHIAZIDE [Concomitant]
     Indication: HYPERTENSION

REACTIONS (9)
  - Device malfunction [Recovering/Resolving]
  - Injection site pain [Unknown]
  - Injection site macule [Unknown]
  - Injection site erythema [Unknown]
  - Hypertension [Recovered/Resolved]
  - Incorrect dose administered [Unknown]
  - Injection site laceration [Unknown]
  - Injection site haemorrhage [Unknown]
  - Wrong technique in drug usage process [Unknown]
